FAERS Safety Report 9361232 (Version 1)
Quarter: 2013Q2

REPORT INFORMATION
  Report Type: Report from Study
  Country: ZW (occurrence: ZW)
  Receive Date: 20130621
  Receipt Date: 20130621
  Transmission Date: 20140414
  Serious: Yes (Life-Threatening, Other)
  Sender: FDA-Public Use
  Company Number: ZW-BRISTOL-MYERS SQUIBB COMPANY-19022912

PATIENT
  Age: 27 Year
  Sex: Female

DRUGS (2)
  1. EFAVIRENZ [Suspect]
     Indication: HIV INFECTION
     Dosage: LAST DOSE 20MAY2013: 14 DAYS
     Route: 048
     Dates: start: 20130506
  2. TENOFOVIR DF + EMTRICITABINE [Suspect]
     Indication: HIV INFECTION
     Dosage: RECENT DOSE 20MAY2013: 14 DAYS?TABS
     Route: 048
     Dates: start: 20130506

REACTIONS (1)
  - Hepatic enzyme increased [Recovered/Resolved]
